FAERS Safety Report 18064057 (Version 2)
Quarter: 2020Q4

REPORT INFORMATION
  Report Type: Spontaneous
  Country: US (occurrence: US)
  Receive Date: 20200724
  Receipt Date: 20201021
  Transmission Date: 20210113
  Serious: Yes (Other)
  Sender: FDA-Public Use
  Company Number: US-AEGERION PHARMACEUTICAL, INC-AEGR004916

PATIENT
  Sex: Male
  Weight: 29.93 kg

DRUGS (2)
  1. MYALEPT [Suspect]
     Active Substance: METRELEPTIN
     Indication: LIPODYSTROPHY ACQUIRED
     Dosage: 34 UNITS, QD
     Route: 058
     Dates: start: 20181205, end: 2020
  2. MYALEPT [Suspect]
     Active Substance: METRELEPTIN
     Dosage: 27 UNITS, QD
     Route: 058
     Dates: start: 2020

REACTIONS (5)
  - Blood triglycerides increased [Recovering/Resolving]
  - Weight decreased [Recovering/Resolving]
  - Diet noncompliance [Recovering/Resolving]
  - Weight increased [Not Recovered/Not Resolved]
  - Product dose omission issue [Unknown]

NARRATIVE: CASE EVENT DATE: 2020
